FAERS Safety Report 9651040 (Version 1)
Quarter: 2013Q4

REPORT INFORMATION
  Report Type: Report from Study
  Country: IN (occurrence: IN)
  Receive Date: 20131029
  Receipt Date: 20131029
  Transmission Date: 20140711
  Serious: Yes (Death, Hospitalization)
  Sender: FDA-Public Use
  Company Number: PHHY2013IN121542

PATIENT
  Age: 54 Year
  Sex: Female

DRUGS (1)
  1. FEMARA [Suspect]
     Indication: BREAST CANCER
     Dosage: 2.5 MG, QD
     Route: 048
     Dates: start: 20130715, end: 20130910

REACTIONS (6)
  - Death [Fatal]
  - Rectal haemorrhage [Unknown]
  - Candida infection [Unknown]
  - Haemorrhoids [Unknown]
  - Mucosal inflammation [Unknown]
  - Full blood count decreased [Unknown]
